FAERS Safety Report 7121668-5 (Version None)
Quarter: 2010Q4

REPORT INFORMATION
  Report Type: 
  Country: None (occurrence: None)
  Receive Date: 20101124
  Receipt Date: 20101122
  Transmission Date: 20110411
  Serious: No
  Sender: FDA-Public Use
  Company Number: US-PFIZER INC-2010155083

PATIENT
  Sex: Male
  Weight: 102 kg

DRUGS (12)
  1. CHANTIX [Suspect]
     Indication: SMOKING CESSATION THERAPY
     Dosage: 0.5 MG, 1X/DAY
     Route: 048
     Dates: start: 20101116
  2. CHANTIX [Suspect]
     Dosage: 0.5 MG, 2X/DAY
     Route: 048
  3. LIPITOR [Concomitant]
     Dosage: 10 MG, UNK
  4. VALSARTAN [Concomitant]
     Dosage: 80 MG, UNK
  5. PLAVIX [Concomitant]
     Dosage: 75 MG, UNK
  6. TRICOR [Concomitant]
     Dosage: 145 MG, UNK
  7. DOXAZOSIN [Concomitant]
     Dosage: 2 MG, UNK
  8. DETROL LA [Concomitant]
     Dosage: 4 MG, UNK
  9. CARDURA [Concomitant]
     Dosage: 2 MG, UNK
  10. METOPROLOL - SLOW RELEASE [Concomitant]
     Dosage: 50 MG, UNK
  11. NEXIUM [Concomitant]
     Dosage: 40 MG, UNK
  12. HYDROCHLOROTHIAZIDE [Concomitant]
     Dosage: 12.5 MG, UNK

REACTIONS (2)
  - DRY MOUTH [None]
  - OROPHARYNGEAL PAIN [None]
